FAERS Safety Report 5266476-5 (Version None)
Quarter: 2007Q1

REPORT INFORMATION
  Report Type: 
  Country: None (occurrence: None)
  Receive Date: 20070315
  Receipt Date: 20070307
  Transmission Date: 20070707
  Serious: Yes (Hospitalization)
  Sender: FDA-Public Use
  Company Number: PR-BAXTER-2007BH002844

PATIENT
  Sex: Female

DRUGS (1)
  1. SODIUM CHLORIDE 0.9% IN PLASTIC CONTAINER [Suspect]
     Route: 010
     Dates: start: 20070117, end: 20070117

REACTIONS (2)
  - CHEST PAIN [None]
  - CHILLS [None]
